FAERS Safety Report 9279449 (Version 1)
Quarter: 2013Q2

REPORT INFORMATION
  Report Type: Spontaneous
  Country: US (occurrence: US)
  Receive Date: 20130508
  Receipt Date: 20130508
  Transmission Date: 20140414
  Serious: No
  Sender: FDA-Public Use
  Company Number: US-009507513-1305USA001745

PATIENT
  Age: 19 Year
  Sex: Male

DRUGS (1)
  1. SAPHRIS [Suspect]
     Indication: SCHIZOPHRENIA
     Dosage: 5 MG, TABLET RAPID DISSOLVE, BID
     Route: 060
     Dates: start: 201304, end: 201304

REACTIONS (4)
  - Agitation [Recovering/Resolving]
  - Lethargy [Recovering/Resolving]
  - Akathisia [Recovering/Resolving]
  - Anxiety [Recovering/Resolving]
